FAERS Safety Report 7800628-2 (Version None)
Quarter: 2011Q4

REPORT INFORMATION
  Report Type: 
  Country: None (occurrence: None)
  Receive Date: 20111006
  Receipt Date: 20110518
  Transmission Date: 20120403
  Serious: No
  Sender: FDA-Public Use
  Company Number: US-BAYER-2011-044371

PATIENT
  Age: 73 Year
  Sex: Female
  Weight: 107 kg

DRUGS (5)
  1. ALEVE (CAPLET) [Suspect]
     Indication: ARTHRITIS
     Dosage: 220 MG, QD
     Route: 048
     Dates: start: 20110401
  2. BLOOD PRESSURE MEDICATION (NOS) [Concomitant]
  3. MULTI-VITAMINS [Concomitant]
  4. DRUG USED IN DIABETES [Concomitant]
  5. CRESTOR [Concomitant]

REACTIONS (1)
  - PAIN [None]
